FAERS Safety Report 22591380 (Version 3)
Quarter: 2023Q2

REPORT INFORMATION
  Report Type: Spontaneous
  Country: PL (occurrence: PL)
  Receive Date: 20230612
  Receipt Date: 20230623
  Transmission Date: 20230722
  Serious: No
  Sender: FDA-Public Use
  Company Number: PL-BAUSCH-BL-2023-008945

PATIENT
  Age: 31 Year
  Sex: Female

DRUGS (6)
  1. IMIQUIMOD [Suspect]
     Active Substance: IMIQUIMOD
     Indication: Skin papilloma
     Route: 061
  2. FLUOROURACIL [Suspect]
     Active Substance: FLUOROURACIL
     Indication: Skin papilloma
     Route: 061
  3. TRETINOIN [Suspect]
     Active Substance: TRETINOIN
     Indication: Skin papilloma
     Route: 061
  4. PODOFILOX [Suspect]
     Active Substance: PODOFILOX
     Indication: Skin papilloma
     Route: 061
  5. ISOPRINOSINE [Suspect]
     Active Substance: INOSINE PRANOBEX
     Indication: Skin papilloma
     Route: 065
  6. CHLOROACETIC ACID [Suspect]
     Active Substance: CHLOROACETIC ACID
     Indication: Skin papilloma
     Dosage: ACETIC ACID MONOCHLORIDE
     Route: 065

REACTIONS (1)
  - Therapy non-responder [Unknown]
